FAERS Safety Report 17323276 (Version 1)
Quarter: 2020Q1

REPORT INFORMATION
  Report Type: Spontaneous
  Country: US (occurrence: US)
  Receive Date: 20200127
  Receipt Date: 20200127
  Transmission Date: 20200409
  Serious: Yes (Other)
  Sender: FDA-Public Use
  Company Number: US-TEVA-2020-US-1173263

PATIENT
  Age: 55 Year
  Sex: Female

DRUGS (1)
  1. SILDENAFIL. [Suspect]
     Active Substance: SILDENAFIL
     Route: 065

REACTIONS (4)
  - Throat tightness [Unknown]
  - Ear swelling [Unknown]
  - Nasal inflammation [Unknown]
  - Hypersensitivity [Unknown]
